FAERS Safety Report 5270390-9 (Version None)
Quarter: 2007Q1

REPORT INFORMATION
  Report Type: 
  Country: None (occurrence: None)
  Receive Date: 20070320
  Receipt Date: 20070316
  Transmission Date: 20070707
  Serious: Yes (Congenital Anomaly, Other)
  Sender: FDA-Public Use
  Company Number: GB-BOEHRINGER INGELHEIM GMBH, GERMANY-2006-UK-03692UK

PATIENT

DRUGS (2)
  1. VIRAMUNE [Suspect]
     Indication: HIV INFECTION
     Route: 064
     Dates: start: 20060717
  2. COMBIVIR [Suspect]
     Route: 064
     Dates: start: 20060717

REACTIONS (3)
  - ASCITES [None]
  - HYDROPS FOETALIS [None]
  - PERICARDIAL EFFUSION [None]
